FAERS Safety Report 9265990 (Version 2)
Quarter: 2013Q2

REPORT INFORMATION
  Report Type: Spontaneous
  Country: US (occurrence: US)
  Receive Date: 20130501
  Receipt Date: 20130628
  Transmission Date: 20140414
  Serious: Yes (Hospitalization)
  Sender: FDA-Public Use
  Company Number: US-B.I. PHARMACEUTICALS,INC./RIDGEFIELD-2013-BI-11940BP

PATIENT
  Age: 72 Year
  Sex: Female
  Weight: 63.5 kg

DRUGS (20)
  1. PRADAXA [Suspect]
     Indication: ANTICOAGULANT THERAPY
     Dosage: 300 MG
     Route: 048
     Dates: start: 20110805, end: 20110912
  2. ACTOS [Concomitant]
     Dosage: 30 MG
     Route: 048
  3. SYNTHROID [Concomitant]
     Dosage: 75 MCG
     Route: 048
  4. ACULAR [Concomitant]
  5. MULTI-DAY [Concomitant]
     Route: 048
  6. OCUVITE [Concomitant]
     Route: 048
  7. VITAMIN E [Concomitant]
     Dosage: 400 U
     Route: 048
  8. VITAMIN C [Concomitant]
     Dosage: 1000 MG
     Route: 048
  9. OS-CAL ULTRA [Concomitant]
     Dosage: 200 MG
     Route: 048
  10. GLYBURIDE-METFORMIN [Concomitant]
     Route: 048
  11. METFORMIN [Concomitant]
     Dosage: 1000 MG
     Route: 048
  12. LASIX [Concomitant]
     Dosage: 40 MG
     Route: 048
  13. PRAVASTATIN [Concomitant]
     Dosage: 40 MG
     Route: 048
  14. COQ-10 + FISH OIL [Concomitant]
     Route: 048
  15. KLOR-CON [Concomitant]
     Dosage: 20 MEQ
     Route: 048
  16. FLUTICASONE [Concomitant]
     Dosage: 200 MCG
  17. NEURONTIN [Concomitant]
     Dosage: 600 MG
     Route: 048
  18. MAALOX [Concomitant]
     Dosage: 1200 MG
     Route: 048
  19. METOPROLOL TARTRATE [Concomitant]
     Dosage: 50 MG
     Route: 048
  20. FISH OIL CONCENTRATE [Concomitant]
     Dosage: 4000 MG
     Route: 048

REACTIONS (2)
  - Gastrointestinal haemorrhage [Recovered/Resolved]
  - Atrial fibrillation [Recovered/Resolved]
